FAERS Safety Report 19194669 (Version 1)
Quarter: 2021Q2

REPORT INFORMATION
  Report Type: Report from Study
  Country: US (occurrence: US)
  Receive Date: 20210429
  Receipt Date: 20210429
  Transmission Date: 20210717
  Serious: Yes (Death, Other)
  Sender: FDA-Public Use
  Company Number: US-EXELIXIS-XL18421039748

PATIENT

DRUGS (12)
  1. DOXORUBICIN [Concomitant]
     Active Substance: DOXORUBICIN
  2. IPILIMUMAB [Suspect]
     Active Substance: IPILIMUMAB
     Indication: UNDIFFERENTIATED SARCOMA
     Dosage: 1 MG/KG, Q3WEEKS
     Route: 042
     Dates: start: 20210223
  3. NIVOLUMAB [Suspect]
     Active Substance: NIVOLUMAB
     Indication: UNDIFFERENTIATED SARCOMA
     Dosage: 3 MG/KG, Q3WEEKS
     Route: 042
     Dates: start: 20210223
  4. TEMOVATE [Concomitant]
     Active Substance: CLOBETASOL PROPIONATE
  5. LORATADINE. [Concomitant]
     Active Substance: LORATADINE
  6. KENALOG [Concomitant]
     Active Substance: TRIAMCINOLONE ACETONIDE
  7. PREDNISONE. [Concomitant]
     Active Substance: PREDNISONE
  8. ZYRTEC [Concomitant]
     Active Substance: CETIRIZINE HYDROCHLORIDE
  9. COMPAZINE [Concomitant]
     Active Substance: PROCHLORPERAZINE MALEATE
  10. XL184 [Suspect]
     Active Substance: CABOZANTINIB
     Indication: UNDIFFERENTIATED SARCOMA
     Dosage: 40 MG, QD
     Route: 048
     Dates: start: 20210223
  11. DEXRAZOXANE. [Concomitant]
     Active Substance: DEXRAZOXANE
  12. ONDANSETRON HCL [Concomitant]
     Active Substance: ONDANSETRON HYDROCHLORIDE

REACTIONS (3)
  - Multiple organ dysfunction syndrome [Unknown]
  - Cardiac arrest [Unknown]
  - Sepsis [Fatal]

NARRATIVE: CASE EVENT DATE: 20210422
